FAERS Safety Report 6892485-6 (Version None)
Quarter: 2010Q3

REPORT INFORMATION
  Report Type: 
  Country: None (occurrence: None)
  Receive Date: 20100731
  Receipt Date: 20080708
  Transmission Date: 20110219
  Serious: No
  Sender: FDA-Public Use
  Company Number: US-PFIZER INC-2008049535

PATIENT
  Sex: Female

DRUGS (4)
  1. GABAPENTIN [Suspect]
  2. MORPHINE [Suspect]
  3. TRAMADOL HYDROCHLORIDE [Suspect]
  4. ALL OTHER THERAPEUTIC PRODUCTS [Suspect]

REACTIONS (1)
  - UNEVALUABLE EVENT [None]
